FAERS Safety Report 19587952 (Version 1)
Quarter: 2021Q3

REPORT INFORMATION
  Report Type: Spontaneous
  Country: DE (occurrence: DE)
  Receive Date: 20210721
  Receipt Date: 20210721
  Transmission Date: 20211014
  Serious: Yes (Hospitalization)
  Sender: FDA-Public Use
  Company Number: DE-ACCORD-232324

PATIENT
  Age: 88 Year
  Sex: Female

DRUGS (10)
  1. XIPAMID 20?1A PHARMA [Suspect]
     Active Substance: XIPAMIDE
     Indication: PRODUCT USED FOR UNKNOWN INDICATION
     Dosage: 10 MG, 1?1?0?0, TABLETS
     Route: 048
  2. LEGANTO [Concomitant]
     Active Substance: ROTIGOTINE
     Dosage: 2 MG, TRANSDERMAL PATCH, 2MG/24H
     Route: 003
  3. POTASSIUM [Concomitant]
     Active Substance: POTASSIUM
     Dosage: 2?0?0?2, TABLETS
     Route: 048
  4. VERAMEX [Concomitant]
     Active Substance: VERAPAMIL HYDROCHLORIDE
     Dosage: 80 MG, 1?0?1?0, TABLET
     Route: 048
  5. FUROSEMIDE. [Suspect]
     Active Substance: FUROSEMIDE
     Indication: PRODUCT USED FOR UNKNOWN INDICATION
     Dosage: 40 MG, 1?0.5?0?0, TABLETS
     Route: 048
  6. APIXABAN [Concomitant]
     Active Substance: APIXABAN
     Dosage: 2.5 MG, 1?0?0?0, TABLET
     Route: 048
  7. VERAMEX [Concomitant]
     Active Substance: VERAPAMIL HYDROCHLORIDE
     Dosage: 120 MG, 1?0?0?1, TABLETS
     Route: 048
  8. PREGABALIN. [Concomitant]
     Active Substance: PREGABALIN
     Dosage: 50 MG, 0?0?1?0, CAPSULE
     Route: 048
  9. MAGNESIUM VERLA [Concomitant]
     Active Substance: MAGNESIUM
     Dosage: 1?0?0?0, CAPSULE
     Route: 048
  10. LEVOTHYROXINE. [Concomitant]
     Active Substance: LEVOTHYROXINE
     Dosage: 25 UG, 0?1?0?0, TABLET
     Route: 048

REACTIONS (3)
  - Dizziness [Unknown]
  - Oedema peripheral [Unknown]
  - Electrolyte imbalance [Unknown]
